FAERS Safety Report 7701513-7 (Version None)
Quarter: 2011Q3

REPORT INFORMATION
  Report Type: 
  Country: None (occurrence: None)
  Receive Date: 20110822
  Receipt Date: 20110819
  Transmission Date: 20111222
  Serious: Yes (Other)
  Sender: FDA-Public Use
  Company Number: CA-MERCK-1108USA02347

PATIENT
  Age: 27 Year
  Sex: Male
  Weight: 67 kg

DRUGS (2)
  1. PROSCAR [Suspect]
     Route: 048
  2. TYLENOL-500 [Concomitant]
     Route: 065

REACTIONS (3)
  - COGNITIVE DISORDER [None]
  - SPEECH DISORDER [None]
  - MEMORY IMPAIRMENT [None]
